FAERS Safety Report 24234904 (Version 2)
Quarter: 2024Q3

REPORT INFORMATION
  Report Type: Spontaneous
  Country: US (occurrence: US)
  Receive Date: 20240821
  Receipt Date: 20240823
  Transmission Date: 20241017
  Serious: No
  Sender: NOVARTIS
  Company Number: US-002147023-NVSC2024US168322

PATIENT
  Sex: Male

DRUGS (1)
  1. COSENTYX [Suspect]
     Active Substance: SECUKINUMAB
     Indication: Ankylosing spondylitis
     Dosage: 150 MILLIGRAM PER MILLILITRE, QMO
     Route: 065

REACTIONS (5)
  - Swelling [Unknown]
  - Pain [Unknown]
  - Product dose omission issue [Unknown]
  - Device issue [Unknown]
  - Device leakage [Unknown]
